FAERS Safety Report 21550988 (Version 1)
Quarter: 2022Q4

REPORT INFORMATION
  Report Type: Spontaneous
  Country: AT (occurrence: AT)
  Receive Date: 20221103
  Receipt Date: 20221103
  Transmission Date: 20230112
  Serious: Yes (Other)
  Sender: FDA-Public Use
  Company Number: AT-TEVA-2022-AT-2820164

PATIENT
  Age: 64 Year
  Sex: Male

DRUGS (3)
  1. DEXAMETHASONE [Suspect]
     Active Substance: DEXAMETHASONE
     Indication: Skin mass
     Route: 065
     Dates: start: 201702
  2. THALIDOMIDE [Suspect]
     Active Substance: THALIDOMIDE
     Indication: Skin mass
     Route: 065
     Dates: start: 201702
  3. BORTEZOMIB [Suspect]
     Active Substance: BORTEZOMIB
     Indication: Skin mass
     Route: 065
     Dates: start: 201702

REACTIONS (1)
  - Neuropathy peripheral [Unknown]
